FAERS Safety Report 12311467 (Version 2)
Quarter: 2016Q3

REPORT INFORMATION
  Report Type: Spontaneous
  Country: US (occurrence: US)
  Receive Date: 20160427
  Receipt Date: 20160725
  Transmission Date: 20161109
  Serious: Yes (Hospitalization)
  Sender: FDA-Public Use
  Company Number: US-BAYER-2016-080449

PATIENT
  Age: 32 Year
  Sex: Female

DRUGS (1)
  1. MIRENA [Suspect]
     Active Substance: LEVONORGESTREL
     Indication: CONTRACEPTION
     Dosage: 20 MCG/24HR, CONT
     Route: 015
     Dates: start: 201001, end: 20140725

REACTIONS (6)
  - Procedural pain [None]
  - Abdominal pain lower [None]
  - Uterine perforation [None]
  - Anxiety [None]
  - Uterine cervical erosion [None]
  - Depression [None]

NARRATIVE: CASE EVENT DATE: 2014
